FAERS Safety Report 24012087 (Version 1)
Quarter: 2024Q2

REPORT INFORMATION
  Report Type: Spontaneous
  Country: US (occurrence: US)
  Receive Date: 20240625
  Receipt Date: 20240625
  Transmission Date: 20240716
  Serious: No
  Sender: FDA-Public Use
  Company Number: US-SA-SAC20240620001431

PATIENT
  Sex: Male

DRUGS (12)
  1. DUPIXENT [Suspect]
     Active Substance: DUPILUMAB
     Indication: Asthma
     Dosage: 300 MG, QOW
     Route: 058
     Dates: start: 20211231
  2. BUDESONIDE [Concomitant]
     Active Substance: BUDESONIDE
  3. FAMOTIDINE [Concomitant]
     Active Substance: FAMOTIDINE
  4. INCRUSE ELLIPTA [Concomitant]
     Active Substance: UMECLIDINIUM BROMIDE
  5. MONTELUKAST [Concomitant]
     Active Substance: MONTELUKAST SODIUM
  6. PREDNISONE [Concomitant]
     Active Substance: PREDNISONE
  7. ROSUVASTATIN [Concomitant]
     Active Substance: ROSUVASTATIN
  8. TADALAFIL [Concomitant]
     Active Substance: TADALAFIL
  9. TAMSULOSIN [Concomitant]
     Active Substance: TAMSULOSIN
  10. WIXELA INHUB [Concomitant]
     Active Substance: FLUTICASONE PROPIONATE\SALMETEROL XINAFOATE
  11. XHANCE [Concomitant]
     Active Substance: FLUTICASONE PROPIONATE
  12. FINASTERIDE [Concomitant]
     Active Substance: FINASTERIDE

REACTIONS (2)
  - Oral herpes [Unknown]
  - Drug ineffective [Unknown]
